FAERS Safety Report 5921485-5 (Version None)
Quarter: 2008Q4

REPORT INFORMATION
  Report Type: 
  Country: None (occurrence: None)
  Receive Date: 20081016
  Receipt Date: 20081016
  Transmission Date: 20090506
  Serious: Yes (Disabling)
  Sender: FDA-Public Use
  Company Number: None

PATIENT
  Sex: Female
  Weight: 48.0813 kg

DRUGS (1)
  1. ADVAIR DISKUS 100/50 [Suspect]
     Indication: ASTHMA
     Dosage: 250/50 2X  PER DAY  INHALE
     Route: 055
     Dates: start: 19950101

REACTIONS (2)
  - OSTEOPOROSIS [None]
  - RESORPTION BONE INCREASED [None]
